FAERS Safety Report 5557433-X (Version None)
Quarter: 2007Q4

REPORT INFORMATION
  Report Type: 
  Country: None (occurrence: None)
  Receive Date: 20071214
  Receipt Date: 20071211
  Transmission Date: 20080405
  Serious: Yes (Other)
  Sender: FDA-Public Use
  Company Number: US-JNJFOC-20071000570

PATIENT
  Sex: Female

DRUGS (2)
  1. EXTRA STRENGTH TYLENOL [Suspect]
  2. EXTRA STRENGTH TYLENOL [Suspect]
     Indication: PAIN
     Dosage: LESS THEN 4000 MG A DAY

REACTIONS (1)
  - RENAL FAILURE CHRONIC [None]
